FAERS Safety Report 11951355 (Version 1)
Quarter: 2016Q1

REPORT INFORMATION
  Report Type: Spontaneous
  Country: CA (occurrence: CA)
  Receive Date: 20160126
  Receipt Date: 20160126
  Transmission Date: 20160526
  Serious: Yes (Hospitalization)
  Sender: FDA-Public Use
  Company Number: CA-ASTRAZENECA-2016SE05959

PATIENT
  Age: 63 Year
  Sex: Female

DRUGS (2)
  1. METFORMIN [Suspect]
     Active Substance: METFORMIN HYDROCHLORIDE
     Dosage: NON-ASTRAZENECA PRODUCT, 1000 MG TWICE DAILY
     Route: 048
  2. FORXIGA [Suspect]
     Active Substance: DAPAGLIFLOZIN
     Indication: DIABETES MELLITUS
     Route: 048

REACTIONS (2)
  - Diabetic ketoacidosis [Recovered/Resolved]
  - Epigastric discomfort [Recovered/Resolved]
